FAERS Safety Report 4688556-5 (Version None)
Quarter: 2005Q2

REPORT INFORMATION
  Report Type: 
  Country: None (occurrence: None)
  Receive Date: 20050609
  Receipt Date: 20050531
  Transmission Date: 20051028
  Serious: Yes (Hospitalization)
  Sender: FDA-Public Use
  Company Number: 2005-05-2101

PATIENT
  Age: 21 Year
  Sex: Male

DRUGS (3)
  1. CELESTONE [Suspect]
     Indication: INFLUENZA
     Dosage: 4 MG QD ORAL
     Route: 048
     Dates: start: 20050128, end: 20050203
  2. IBUPROFEN [Suspect]
     Indication: INFLUENZA
     Dosage: 400 MG QID ORAL
     Route: 048
     Dates: start: 20050121, end: 20050128
  3. SERETIDE (SALAMETEROL XINAFOATE/FLUTICASONE PROPIONAT INHALATION SOLUT [Suspect]
     Indication: INFLUENZA
     Dosage: 500 UG BID INHALATION
     Dates: end: 20050206

REACTIONS (1)
  - BRONCHOPULMONARY ASPERGILLOSIS [None]
